FAERS Safety Report 12558195 (Version 1)
Quarter: 2016Q3

REPORT INFORMATION
  Report Type: Spontaneous
  Country: US (occurrence: US)
  Receive Date: 20160714
  Receipt Date: 20160714
  Transmission Date: 20161109
  Serious: Yes (Hospitalization, Other)
  Sender: FDA-Public Use
  Company Number: US-GLAXOSMITHKLINE-US2016100732

PATIENT
  Sex: Female

DRUGS (12)
  1. ADVAIR DISKUS [Suspect]
     Active Substance: FLUTICASONE PROPIONATE\SALMETEROL XINAFOATE
     Indication: BRONCHITIS
     Dosage: 1 PUFF(S), BID
     Route: 055
  2. ADVAIR DISKUS [Suspect]
     Active Substance: FLUTICASONE PROPIONATE\SALMETEROL XINAFOATE
     Indication: ASTHMA
  3. NAPROXEN. [Concomitant]
     Active Substance: NAPROXEN
  4. OXYBUTYNIN [Concomitant]
     Active Substance: OXYBUTYNIN
  5. SINGULAIR [Concomitant]
     Active Substance: MONTELUKAST SODIUM
  6. METAMUCIL [Concomitant]
     Active Substance: PLANTAGO SEED
  7. OMEPRAZOLE. [Concomitant]
     Active Substance: OMEPRAZOLE
  8. SIMVASTATIN. [Concomitant]
     Active Substance: SIMVASTATIN
  9. COLACE [Concomitant]
     Active Substance: DOCUSATE SODIUM
  10. OXYCODONE [Concomitant]
     Active Substance: OXYCODONE
  11. ADVAIR DISKUS [Suspect]
     Active Substance: FLUTICASONE PROPIONATE\SALMETEROL XINAFOATE
     Indication: CHRONIC OBSTRUCTIVE PULMONARY DISEASE
  12. ALBUTEROL NEBULIZER [Concomitant]
     Active Substance: ALBUTEROL

REACTIONS (3)
  - Lung carcinoma cell type unspecified stage IV [Not Recovered/Not Resolved]
  - Cardiovascular event prophylaxis [Recovered/Resolved]
  - Drug dose omission [Not Recovered/Not Resolved]

NARRATIVE: CASE EVENT DATE: 20160601
